FAERS Safety Report 15756309 (Version 1)
Quarter: 2018Q4

REPORT INFORMATION
  Report Type: Spontaneous
  Country: US (occurrence: US)
  Receive Date: 20181224
  Receipt Date: 20181224
  Transmission Date: 20190205
  Serious: Yes (Other)
  Sender: FDA-Public Use
  Company Number: US-RECORDATI RARE DISEASES INC.-US-R13005-18-00318

PATIENT
  Age: 30 Year
  Sex: Female

DRUGS (1)
  1. HEMIN [Suspect]
     Active Substance: HEMIN
     Indication: PORPHYRIA ACUTE
     Route: 065

REACTIONS (4)
  - Off label use [Unknown]
  - Impaired quality of life [Unknown]
  - Low income [Unknown]
  - Suicidal ideation [Unknown]
